FAERS Safety Report 4304105-5 (Version None)
Quarter: 2004Q1

REPORT INFORMATION
  Report Type: 
  Country: None (occurrence: None)
  Receive Date: 20040223
  Receipt Date: 20031203
  Transmission Date: 20041129
  Serious: No
  Sender: FDA-Public Use
  Company Number: PHEH2003US11033

PATIENT
  Age: 73 Year
  Sex: Female

DRUGS (5)
  1. ZELNORM [Suspect]
     Indication: IRRITABLE BOWEL SYNDROME
     Dosage: 6 MG, BID, ORAL
     Route: 048
     Dates: start: 20030801
  2. ELAVIL [Concomitant]
  3. DONNATAL [Concomitant]
  4. ACCUPRIL [Concomitant]
  5. TRIAMTERENE AND HYDROCHLOROTHIAZIDE [Concomitant]

REACTIONS (4)
  - ERYTHEMA [None]
  - GLOSSITIS [None]
  - GLOSSODYNIA [None]
  - TONGUE DISORDER [None]
